FAERS Safety Report 7164076-3 (Version None)
Quarter: 2010Q4

REPORT INFORMATION
  Report Type: 
  Country: None (occurrence: None)
  Receive Date: 20101215
  Receipt Date: 20101203
  Transmission Date: 20110411
  Serious: Yes (Hospitalization)
  Sender: FDA-Public Use
  Company Number: US-ACTELION-A-NJ2010-42334

PATIENT

DRUGS (3)
  1. BOSENTAN TABLET UNKNOWN US MG [Suspect]
     Indication: PULMONARY ARTERIAL HYPERTENSION
     Dosage: UNK
     Route: 048
     Dates: start: 20090106
  2. REVATIO [Concomitant]
  3. COUMADIN [Concomitant]

REACTIONS (1)
  - POST PROCEDURAL COMPLICATION [None]
